FAERS Safety Report 23377666 (Version 2)
Quarter: 2024Q1

REPORT INFORMATION
  Report Type: Report from Study
  Country: US (occurrence: US)
  Receive Date: 20240108
  Receipt Date: 20240114
  Transmission Date: 20240410
  Serious: Yes (Other)
  Sender: FDA-Public Use
  Company Number: US-ABBVIE-5573691

PATIENT
  Age: 37 Year
  Sex: Male
  Weight: 131.99 kg

DRUGS (4)
  1. HUMIRA [Suspect]
     Active Substance: ADALIMUMAB
     Indication: Hidradenitis
     Dosage: FORM STRENGTH: 40 MILLIGRAM?CITRATE FREE
     Route: 058
     Dates: start: 20230825
  2. HUMIRA [Suspect]
     Active Substance: ADALIMUMAB
     Indication: Product used for unknown indication
  3. MELOXICAM [Concomitant]
     Active Substance: MELOXICAM
     Indication: Osteoarthritis
  4. ROSUVASTATIN [Concomitant]
     Active Substance: ROSUVASTATIN
     Indication: Blood cholesterol increased

REACTIONS (5)
  - Tympanic membrane perforation [Not Recovered/Not Resolved]
  - Deafness [Not Recovered/Not Resolved]
  - Ear infection [Not Recovered/Not Resolved]
  - Limb injury [Unknown]
  - Cerumen impaction [Unknown]

NARRATIVE: CASE EVENT DATE: 20231201
